FAERS Safety Report 15558040 (Version 2)
Quarter: 2019Q1

REPORT INFORMATION
  Report Type: Spontaneous
  Country: US (occurrence: US)
  Receive Date: 20181027
  Receipt Date: 20190104
  Transmission Date: 20190417
  Serious: No
  Sender: FDA-Public Use
  Company Number: US-009507513-1810USA009879

PATIENT
  Age: 52 Year
  Sex: Male
  Weight: 96.15 kg

DRUGS (15)
  1. NICODERM CQ [Concomitant]
     Active Substance: NICOTINE
     Dosage: STRENGTH: 14 MG/24 HR, APPLY 1 DAILY FOR 42 DAYS. STOP SMOKING ON DAY 1 OF PATCH USE. APPLY DAILY FO
     Route: 062
     Dates: start: 20180820
  2. ZEPATIER [Suspect]
     Active Substance: ELBASVIR\GRAZOPREVIR
     Indication: CHRONIC HEPATITIS C
     Dosage: 1 TABLET, QD. QUANTITY: 28, REFIL: 2
     Route: 048
     Dates: start: 20180912, end: 2018
  3. FUROSEMIDE. [Concomitant]
     Active Substance: FUROSEMIDE
     Dosage: 40 MG EVERY 24 HOURS, QUANTITY: 60, REFIL: 3
     Route: 048
     Dates: start: 20180820
  4. IBUPROFEN. [Concomitant]
     Active Substance: IBUPROFEN
     Indication: PAIN
     Dosage: 600 MG EVERY 6 TO 8 HOURS (AS NEEDED). AVOID LONG TERM USE. TAKE WITH FOOD. NOT TO EXCEED 4 TABS DAI
     Route: 048
     Dates: start: 20180914
  5. METOPROLOL TARTRATE. [Concomitant]
     Active Substance: METOPROLOL TARTRATE
     Dosage: 100 MG TWICE DAILY; QUANTITY 60, REFIL 3
     Route: 048
     Dates: start: 20181002
  6. ENTRESTO [Concomitant]
     Active Substance: SACUBITRIL\VALSARTAN
     Dosage: 24-26 MG TWICE DAILY, QUANTITY: 60, REFIL: 3
     Route: 048
     Dates: start: 20180820
  7. VENTOLIN HFA [Concomitant]
     Active Substance: ALBUTEROL SULFATE
     Indication: BRONCHOSPASM
     Dosage: 2 PUFFS EVERY 4 TO 6 HOURS (AS NEEDED), QUANTITY: 1, REFIL: 3
     Dates: start: 20180820
  8. ALDACTONE [Concomitant]
     Active Substance: SPIRONOLACTONE
     Dosage: 25 MG EVERY 24 HOURS. QUANTITY: 60, REFIL: 3
     Route: 048
     Dates: start: 20180820
  9. MAGNESIUM OXIDE. [Concomitant]
     Active Substance: MAGNESIUM OXIDE
     Dosage: 400 MG DAILY, QUANTITY: 60, REFIL: 0
     Route: 048
     Dates: start: 20180820
  10. TRAZODONE HYDROCHLORIDE. [Concomitant]
     Active Substance: TRAZODONE HYDROCHLORIDE
     Indication: ANXIETY
  11. ATORVASTATIN CALCIUM. [Concomitant]
     Active Substance: ATORVASTATIN CALCIUM
     Dosage: 40 MG AT BEDTIME, QUANTITY: 30, REFIL: 3
     Route: 048
     Dates: start: 20180820
  12. TRAZODONE HYDROCHLORIDE. [Concomitant]
     Active Substance: TRAZODONE HYDROCHLORIDE
     Indication: DEPRESSION
     Dosage: 100 MG AT BEDTIME, QUANTITY: 30, REFIL: 3
     Route: 048
     Dates: start: 20180820
  13. ATORVASTATIN CALCIUM. [Concomitant]
     Active Substance: ATORVASTATIN CALCIUM
     Dosage: 20 MG AT BEDTIME. QUANTITY: 30, REFIL: 2. TO TAKE REDUCED DOSE DURING HEP C TREATMENT DUE TO POTENTI
     Route: 048
     Dates: start: 20181010
  14. NICODERM CQ [Concomitant]
     Active Substance: NICOTINE
     Dosage: STRENGTH: 7 MG/24 HR, APPLY 1 DAILY FOR 14 DAYS. 7 MG/24 HR FOR 14 DAYS FOR APPLICATION AFTER USING
     Route: 062
     Dates: start: 20180820
  15. RANITIDINE HYDROCHLORIDE. [Concomitant]
     Active Substance: RANITIDINE HYDROCHLORIDE
     Indication: DYSPEPSIA
     Dosage: 150 MG TWICE DAILY (AS NEEDED). QUANTITY: 60. REFIL: 3
     Route: 048
     Dates: start: 20180827

REACTIONS (5)
  - Pruritus [Unknown]
  - Nausea [Unknown]
  - Feeling cold [Unknown]
  - Decreased appetite [Unknown]
  - Hot flush [Unknown]

NARRATIVE: CASE EVENT DATE: 20181010
